FAERS Safety Report 8508220-1 (Version None)
Quarter: 2012Q2

REPORT INFORMATION
  Report Type: 
  Country: None (occurrence: None)
  Receive Date: 20120405
  Receipt Date: 20090330
  Transmission Date: 20120825
  Serious: Yes (Other)
  Sender: FDA-Public Use
  Company Number: PHEH2009US03176

PATIENT
  Sex: Female

DRUGS (2)
  1. RECLAST [Suspect]
     Dosage: , INFUSION
     Dates: start: 20080405
  2. ACTONEL [Suspect]
     Dosage: , ORAL
     Route: 048
     Dates: start: 20090323

REACTIONS (1)
  - HEADACHE [None]
